FAERS Safety Report 5709905-2 (Version None)
Quarter: 2008Q2

REPORT INFORMATION
  Report Type: 
  Country: None (occurrence: None)
  Receive Date: 20080418
  Receipt Date: 20070430
  Transmission Date: 20081010
  Serious: Yes (Other)
  Sender: FDA-Public Use
  Company Number: US-ASTRAZENECA-2007UW08804

PATIENT
  Sex: Male

DRUGS (1)
  1. TOPROL-XL [Suspect]
     Route: 048
     Dates: start: 20050101

REACTIONS (1)
  - DIABETES MELLITUS [None]
